FAERS Safety Report 5847257-8 (Version None)
Quarter: 2008Q3

REPORT INFORMATION
  Report Type: 
  Country: None (occurrence: None)
  Receive Date: 20080815
  Receipt Date: 20080729
  Transmission Date: 20090109
  Serious: No
  Sender: FDA-Public Use
  Company Number: US-BOEHRINGER INGELHEIM GMBH, GERMANY-2008-BP-11958BP

PATIENT
  Age: 80 Year
  Sex: Female

DRUGS (4)
  1. MICARDIS HCT [Suspect]
     Indication: HYPERTENSION
     Route: 048
     Dates: start: 20070701, end: 20080729
  2. LEVOTHYROXINE SODIUM [Concomitant]
  3. MULTI-VITAMIN [Concomitant]
  4. MULTI-VITAMIN [Concomitant]

REACTIONS (4)
  - DYSPHONIA [None]
  - HYPERHIDROSIS [None]
  - MUSCLE SPASMS [None]
  - NERVOUSNESS [None]
